FAERS Safety Report 5892557-9 (Version None)
Quarter: 2008Q3

REPORT INFORMATION
  Report Type: 
  Country: None (occurrence: None)
  Receive Date: 20080923
  Receipt Date: 20080911
  Transmission Date: 20090109
  Serious: Yes (Hospitalization, Other)
  Sender: FDA-Public Use
  Company Number: JP-ELI_LILLY_AND_COMPANY-JP200807002731

PATIENT
  Age: 66 Year
  Sex: Male

DRUGS (2)
  1. GEMZAR [Suspect]
     Indication: LUNG NEOPLASM MALIGNANT
     Dosage: 1400 MG, UNK
     Route: 042
     Dates: start: 20080611
  2. PARAPLATIN [Concomitant]
     Indication: LUNG NEOPLASM MALIGNANT
     Dosage: 330 MG, UNK
     Route: 042
     Dates: start: 20080611, end: 20080625

REACTIONS (1)
  - SHOCK [None]
